FAERS Safety Report 6603802-6 (Version None)
Quarter: 2010Q1

REPORT INFORMATION
  Report Type: 
  Country: None (occurrence: None)
  Receive Date: 20100226
  Receipt Date: 20090205
  Transmission Date: 20100710
  Serious: No
  Sender: FDA-Public Use
  Company Number: A0767162A

PATIENT
  Age: 16 Year
  Sex: Female

DRUGS (2)
  1. LAMICTAL CD [Suspect]
     Indication: BIPOLAR DISORDER
     Dosage: 300MG PER DAY
     Route: 048
  2. BIRTH CONTROL PILLS [Concomitant]

REACTIONS (6)
  - ACNE [None]
  - AFFECT LABILITY [None]
  - ASTHENIA [None]
  - DISTRACTIBILITY [None]
  - INCREASED APPETITE [None]
  - TEARFULNESS [None]
